FAERS Safety Report 8945469 (Version 1)
Quarter: 2012Q4

REPORT INFORMATION
  Report Type: 
  Country: IT (occurrence: IT)
  Receive Date: 20121205
  Receipt Date: 20121205
  Transmission Date: 20130627
  Serious: Yes (Hospitalization)
  Sender: FDA-Public Use
  Company Number: IT-BAYER-2012-126889

PATIENT
  Age: 79 Year
  Sex: Male

DRUGS (2)
  1. CARDIOASPIRIN [Suspect]
     Dosage: 100 mg, QD
     Route: 048
     Dates: start: 20100101, end: 20120914
  2. TEGRETOL [Concomitant]
     Dosage: Daily dose 400 mg
     Route: 048

REACTIONS (3)
  - Subdural haematoma [Not Recovered/Not Resolved]
  - Confusional state [Not Recovered/Not Resolved]
  - Gait disturbance [Not Recovered/Not Resolved]
